FAERS Safety Report 15550338 (Version 2)
Quarter: 2018Q4

REPORT INFORMATION
  Report Type: Report from Study
  Country: JP (occurrence: JP)
  Receive Date: 20181025
  Receipt Date: 20181218
  Transmission Date: 20190205
  Serious: Yes (Other)
  Sender: FDA-Public Use
  Company Number: JP-GLAXOSMITHKLINE-JP2018JPN043342

PATIENT
  Age: 5 Decade
  Sex: Female
  Weight: 40 kg

DRUGS (13)
  1. LANSOPRAZOLE-OD [Concomitant]
     Active Substance: LANSOPRAZOLE
     Indication: PROPHYLAXIS
     Dosage: UNK
  2. PYDOXAL TABLET [Concomitant]
     Dosage: UNK
  3. PREDONINE [Suspect]
     Active Substance: PREDNISOLONE
     Indication: SYSTEMIC LUPUS ERYTHEMATOSUS
     Dosage: 30 MG, 1D
     Route: 048
     Dates: start: 20180113, end: 20180314
  4. CELLCEPT [Concomitant]
     Active Substance: MYCOPHENOLATE MOFETIL\MYCOPHENOLATE MOFETIL HYDROCHLORIDE
     Indication: LUPUS NEPHRITIS
  5. PREDONINE [Suspect]
     Active Substance: PREDNISOLONE
     Dosage: 20 MG, 1D
     Route: 048
     Dates: start: 20180315
  6. CELLCEPT [Concomitant]
     Active Substance: MYCOPHENOLATE MOFETIL\MYCOPHENOLATE MOFETIL HYDROCHLORIDE
     Indication: SYSTEMIC LUPUS ERYTHEMATOSUS
     Dosage: UNK
  7. URSO [Concomitant]
     Active Substance: URSODIOL
     Dosage: UNK
  8. JANUVIA [Concomitant]
     Active Substance: SITAGLIPTIN PHOSPHATE
     Dosage: UNK
  9. BELIMUMAB [Suspect]
     Active Substance: BELIMUMAB
     Indication: SYSTEMIC LUPUS ERYTHEMATOSUS
     Dosage: 10 MG/KG, ONCE IN EVERY TWO WEEKS
     Route: 041
     Dates: start: 20180129, end: 20180306
  10. CICLOSPORIN [Suspect]
     Active Substance: CYCLOSPORINE
     Indication: SYSTEMIC LUPUS ERYTHEMATOSUS
     Dosage: UNK
     Route: 048
  11. BAKTAR COMBINATION TABLETS [Concomitant]
     Active Substance: SULFAMETHOXAZOLE\TRIMETHOPRIM
     Indication: PROPHYLAXIS
     Dosage: UNK
  12. PROMAC D TABLETS [Concomitant]
     Indication: PROPHYLAXIS
     Dosage: UNK
  13. KENKETSU VENILON-I [Concomitant]
     Active Substance: HUMAN IMMUNOGLOBULIN G
     Indication: IMMUNODEFICIENCY COMMON VARIABLE
     Dosage: UNK G, UNK

REACTIONS (2)
  - Blood immunoglobulin G decreased [Recovered/Resolved]
  - Immunodeficiency common variable [Recovering/Resolving]

NARRATIVE: CASE EVENT DATE: 20180219
